FAERS Safety Report 6725641-8 (Version None)
Quarter: 2010Q2

REPORT INFORMATION
  Report Type: 
  Country: None (occurrence: None)
  Receive Date: 20100514
  Receipt Date: 20100501
  Transmission Date: 20101027
  Serious: Yes (Other)
  Sender: FDA-Public Use
  Company Number: US-JNJFOC-20100502271

PATIENT
  Age: 4 Month
  Sex: Male
  Weight: 6.8 kg

DRUGS (3)
  1. CONCENTRATED TYLENOL INFANT DROPS [Suspect]
     Indication: INJECTION
     Dosage: 50MG, 5 TIMES IN A 6 WEEK PERIOD.
     Route: 048
  2. CONCENTRATED TYLENOL INFANT DROPS [Suspect]
     Indication: PYREXIA
     Dosage: 50MG, 5 TIMES IN A 6 WEEK PERIOD.
     Route: 048
  3. CONCENTRATED TYLENOL INFANT DROPS [Suspect]
     Indication: TEETHING
     Dosage: 50MG, 5 TIMES IN A 6 WEEK PERIOD.
     Route: 048

REACTIONS (3)
  - HAEMATOCHEZIA [None]
  - MUCOUS STOOLS [None]
  - PRODUCT QUALITY ISSUE [None]
